FAERS Safety Report 13134808 (Version 1)
Quarter: 2017Q1

REPORT INFORMATION
  Report Type: Spontaneous
  Country: US (occurrence: US)
  Receive Date: 20170120
  Receipt Date: 20170120
  Transmission Date: 20170428
  Serious: Yes (Hospitalization)
  Sender: FDA-Public Use
  Company Number: US-WARNER CHILCOTT, LLC-1062220

PATIENT
  Age: 62 Year
  Sex: Female
  Weight: 73.18 kg

DRUGS (4)
  1. URINARY ANTISPASMODICS REGIMEN 2 [Suspect]
     Active Substance: UNSPECIFIED INGREDIENT
     Route: 048
     Dates: start: 20140528
  2. MYRBETRIQ [Suspect]
     Active Substance: MIRABEGRON
  3. ENABLEX [Suspect]
     Active Substance: DARIFENACIN HYDROBROMIDE
     Route: 048
  4. URINARY ANTISPASMODICS [Suspect]
     Active Substance: UNSPECIFIED INGREDIENT
     Route: 048

REACTIONS (3)
  - Ankle fracture [Recovering/Resolving]
  - Constipation [Unknown]
  - Tinnitus [Unknown]

NARRATIVE: CASE EVENT DATE: 201407
